FAERS Safety Report 24084854 (Version 1)
Quarter: 2024Q3

REPORT INFORMATION
  Report Type: Spontaneous
  Country: RU (occurrence: RU)
  Receive Date: 20240712
  Receipt Date: 20240712
  Transmission Date: 20241017
  Serious: Yes (Other)
  Sender: EXELIXIS
  Company Number: RU-IPSEN Group, Research and Development-2024-13471

PATIENT
  Age: 52 Year
  Sex: Female
  Weight: 40 kg

DRUGS (4)
  1. CABOMETYX [Suspect]
     Active Substance: CABOZANTINIB S-MALATE
     Indication: Renal cancer
     Dosage: 60 MG, 1 TIME PER DAY
     Route: 048
     Dates: start: 20230808, end: 20240227
  2. CABOMETYX [Suspect]
     Active Substance: CABOZANTINIB S-MALATE
     Dosage: 60 MG, 1 TIME PER DAY
     Route: 048
     Dates: start: 20240329, end: 20240405
  3. DIOSMIN [Concomitant]
     Active Substance: DIOSMIN
     Indication: Mesenteric vein thrombosis
     Route: 048
     Dates: start: 20231117
  4. ENOXAPARIN SODIUM [Concomitant]
     Active Substance: ENOXAPARIN SODIUM
     Indication: Mesenteric vein thrombosis
     Route: 058
     Dates: start: 20231117

REACTIONS (1)
  - Skin toxicity [Recovering/Resolving]

NARRATIVE: CASE EVENT DATE: 20240401
